FAERS Safety Report 5176360-3 (Version None)
Quarter: 2006Q4

REPORT INFORMATION
  Report Type: 
  Country: None (occurrence: None)
  Receive Date: 20061207
  Receipt Date: 20061125
  Transmission Date: 20070319
  Serious: No
  Sender: FDA-Public Use
  Company Number: 2006-150026-NL

PATIENT
  Age: 40 Year
  Sex: Female

DRUGS (1)
  1. ETONOGESTREL (BATCH #:  367194/465388) [Suspect]
     Indication: CONTRACEPTION
     Dosage: DF, SUBDERMAL
     Route: 059
     Dates: start: 20021021, end: 20030120

REACTIONS (9)
  - DRUG HYPERSENSITIVITY [None]
  - GENERALISED ERYTHEMA [None]
  - HEADACHE [None]
  - POST PROCEDURAL COMPLICATION [None]
  - PRURITUS [None]
  - RASH [None]
  - SENSATION OF HEAVINESS [None]
  - THERAPY NON-RESPONDER [None]
  - VISION BLURRED [None]
